FAERS Safety Report 25645173 (Version 3)
Quarter: 2025Q3

REPORT INFORMATION
  Report Type: Spontaneous
  Country: US (occurrence: US)
  Receive Date: 20250805
  Receipt Date: 20250828
  Transmission Date: 20251021
  Serious: No
  Sender: TORRENT PHARMA INC.
  Company Number: US-TORRENT-00014459

PATIENT
  Sex: Female

DRUGS (1)
  1. PANTOPRAZOLE SODIUM [Suspect]
     Active Substance: PANTOPRAZOLE SODIUM
     Indication: Product used for unknown indication
     Dosage: 1 TABLET DAILY, CONSUME 61 TABLETS
     Route: 065

REACTIONS (1)
  - Product dose omission issue [Unknown]
